FAERS Safety Report 8734206 (Version 2)
Quarter: 2012Q4

REPORT INFORMATION
  Report Type: 
  Country: US (occurrence: None)
  Receive Date: 20120802
  Receipt Date: 20120821
  Transmission Date: 20130627
  Serious: Yes (Other)
  Sender: FDA-Public Use
  Company Number: AUR-APL-2012-03273

PATIENT
  Age: 70 Year
  Sex: Male

DRUGS (2)
  1. CLINDAMYCIN [Suspect]
     Indication: CELLULITIS
  2. CIPROFLOXACIN (CIPROFLOXACIN) [Suspect]
     Route: 048

REACTIONS (5)
  - Tubulointerstitial nephritis [None]
  - Fatigue [None]
  - Myalgia [None]
  - Pyuria [None]
  - Eosinophilia [None]
